FAERS Safety Report 14683864 (Version 8)
Quarter: 2018Q3

REPORT INFORMATION
  Report Type: Report from Study
  Country: NL (occurrence: NL)
  Receive Date: 20180327
  Receipt Date: 20180706
  Transmission Date: 20181010
  Serious: Yes (Other)
  Sender: FDA-Public Use
  Company Number: NL-AUROBINDO-AUR-APL-2018-010664

PATIENT
  Age: 13 Month
  Sex: Male

DRUGS (4)
  1. VORICONAZOLE. [Interacting]
     Active Substance: VORICONAZOLE
     Indication: ASPERGILLUS INFECTION
     Dosage: LOADING DOSE
     Route: 042
  2. VORICONAZOLE. [Interacting]
     Active Substance: VORICONAZOLE
     Dosage: MAINTAINANCE DOSE
     Route: 042
  3. ITRACONAZOLE. [Suspect]
     Active Substance: ITRACONAZOLE
     Indication: PROPHYLAXIS
     Dosage: UNK
     Route: 065
  4. VORICONAZOLE. [Interacting]
     Active Substance: VORICONAZOLE
     Dosage: 6 MG/KG, TID
     Route: 042

REACTIONS (6)
  - Cardiovascular insufficiency [Unknown]
  - Off label use [Unknown]
  - Drug interaction [Unknown]
  - Drug level above therapeutic [Recovered/Resolved]
  - Hepatotoxicity [Recovered/Resolved]
  - Drug level increased [Recovered/Resolved]
